FAERS Safety Report 11103410 (Version 1)
Quarter: 2015Q2

REPORT INFORMATION
  Report Type: Spontaneous
  Country: US (occurrence: None)
  Receive Date: 20150508
  Receipt Date: 20150508
  Transmission Date: 20150821
  Serious: Yes (Death, Life-Threatening)
  Sender: FDA-Public Use
  Company Number: None

PATIENT

DRUGS (6)
  1. PREDNISONE. [Concomitant]
     Active Substance: PREDNISONE
  2. CLONIDINE. [Concomitant]
     Active Substance: CLONIDINE
  3. METOPROLOL [Concomitant]
     Active Substance: METOPROLOL
  4. AMLODIPINE [Concomitant]
     Active Substance: AMLODIPINE BESYLATE
     Dosage: STRENGTH: 500
  5. RENVELA [Concomitant]
     Active Substance: SEVELAMER CARBONATE
  6. AMOXICILLIN. [Suspect]
     Active Substance: AMOXICILLIN
     Dates: start: 20150416, end: 20150418

REACTIONS (6)
  - Pruritus [None]
  - Skin exfoliation [None]
  - Chills [None]
  - Swelling face [None]
  - Thermal burn [None]
  - Malaise [None]

NARRATIVE: CASE EVENT DATE: 20150416
